FAERS Safety Report 4451222-5 (Version None)
Quarter: 2004Q3

REPORT INFORMATION
  Report Type: 
  Country: None (occurrence: None)
  Receive Date: 20040914
  Receipt Date: 20040825
  Transmission Date: 20050211
  Serious: Yes (Hospitalization)
  Sender: FDA-Public Use
  Company Number: WAES 0408USA02183

PATIENT
  Age: 72 Year
  Sex: Male
  Weight: 117.028 kg

DRUGS (18)
  1. VIOXX [Suspect]
     Indication: NEOPLASM PROPHYLAXIS
     Dosage: 25 MG/DAILY/PO
     Route: 048
     Dates: start: 20001009, end: 20031113
  2. ACETAMINOPHEN [Suspect]
     Indication: PROPHYLAXIS
     Dosage: 325 MG/PRN/PO
     Route: 048
     Dates: start: 20031119
  3. ACETAMINOPHEN [Suspect]
     Indication: PROPHYLAXIS
     Dosage: 325 MG/PRN/PO
     Route: 048
     Dates: start: 20000822, end: 20031113
  4. AMBIEN [Concomitant]
  5. TOPROL-XL [Concomitant]
  6. ALLOPURINOL [Concomitant]
  7. ASPIRIN [Concomitant]
  8. GEMFIBROZIL [Concomitant]
  9. HYDROCHLOROTHIAZIDE [Concomitant]
  10. IBUPROFEN [Concomitant]
  11. ISOSORBIDE MONONITRATE [Concomitant]
  12. LANSOPRAZOLE [Concomitant]
  13. LEVOTHYROXINE SODIUM [Concomitant]
  14. LISINOPRIL [Concomitant]
  15. NITROGLYCERIN [Concomitant]
  16. PANTOPRAZOLE [Concomitant]
  17. PAROXETINE HCL [Concomitant]
  18. TRAZODONE HCL [Concomitant]

REACTIONS (39)
  - ANAEMIA [None]
  - ARTHRALGIA [None]
  - ARTHRITIS [None]
  - ASTHENIA [None]
  - BLOOD BICARBONATE INCREASED [None]
  - BLOOD CHLORIDE DECREASED [None]
  - BLOOD GLUCOSE INCREASED [None]
  - BLOOD POTASSIUM DECREASED [None]
  - BLOOD PRESSURE INADEQUATELY CONTROLLED [None]
  - BLOOD THYROID STIMULATING HORMONE INCREASED [None]
  - BRAIN NATRIURETIC PEPTIDE INCREASED [None]
  - CARDIAC FAILURE CONGESTIVE [None]
  - CARDIOMEGALY [None]
  - CORONARY ARTERY ATHEROSCLEROSIS [None]
  - COUGH [None]
  - DEHYDRATION [None]
  - DIARRHOEA [None]
  - DYSPNOEA [None]
  - EROSIVE DUODENITIS [None]
  - GASTRIC DISORDER [None]
  - GASTROINTESTINAL HAEMORRHAGE [None]
  - GASTROOESOPHAGEAL REFLUX DISEASE [None]
  - HAEMATOCRIT DECREASED [None]
  - HAEMOGLOBIN DECREASED [None]
  - HIATUS HERNIA [None]
  - HYPOCHROMASIA [None]
  - LABORATORY TEST ABNORMAL [None]
  - MEAN CELL HAEMOGLOBIN DECREASED [None]
  - MEAN CELL VOLUME DECREASED [None]
  - MICROCYTOSIS [None]
  - OEDEMA PERIPHERAL [None]
  - OESOPHAGITIS [None]
  - PALLOR [None]
  - PLATELET COUNT DECREASED [None]
  - SERUM FERRITIN DECREASED [None]
  - SUPRAVENTRICULAR EXTRASYSTOLES [None]
  - SURGERY [None]
  - VOMITING [None]
  - WHITE BLOOD CELL COUNT DECREASED [None]
